FAERS Safety Report 25081583 (Version 1)
Quarter: 2025Q1

REPORT INFORMATION
  Report Type: Spontaneous
  Country: CA (occurrence: CA)
  Receive Date: 20250316
  Receipt Date: 20250316
  Transmission Date: 20250408
  Serious: Yes (Other)
  Sender: HLS THERAPEUTICS
  Company Number: CA-HLS-202500706

PATIENT
  Age: 62 Year
  Sex: Female
  Weight: 43 kg

DRUGS (27)
  1. ACETAMINOPHEN [Concomitant]
     Active Substance: ACETAMINOPHEN
     Indication: Product used for unknown indication
     Route: 048
  2. AMMONIUM CHLORIDE [Concomitant]
     Active Substance: AMMONIUM CHLORIDE
     Indication: Antitussive therapy
     Route: 048
  3. BISACODYL [Concomitant]
     Active Substance: BISACODYL
     Indication: Product used for unknown indication
     Route: 065
  4. CALCIUM PHOSPHATE [Suspect]
     Active Substance: CALCIUM PHOSPHATE
     Route: 065
  5. CLOZAPINE [Suspect]
     Active Substance: CLOZAPINE
     Indication: Product used for unknown indication
     Route: 048
  6. DIPHENHYDRAMINE HYDROCHLORIDE [Concomitant]
     Active Substance: DIPHENHYDRAMINE HYDROCHLORIDE
     Route: 048
  7. KRILL OIL [Suspect]
     Active Substance: DIETARY SUPPLEMENT\KRILL OIL
     Route: 065
  8. LACTULOSE [Concomitant]
     Active Substance: LACTULOSE
     Indication: Constipation
     Route: 048
  9. LACTULOSE [Concomitant]
     Active Substance: LACTULOSE
     Indication: Constipation
     Route: 065
  10. LACTULOSE [Concomitant]
     Active Substance: LACTULOSE
     Indication: Constipation
     Route: 065
  11. METHYLCOBALAMIN [Suspect]
     Active Substance: METHYLCOBALAMIN
     Route: 065
  12. UNSPECIFIED INGREDIENT [Suspect]
     Active Substance: UNSPECIFIED INGREDIENT
     Route: 065
  13. MIRTAZAPINE [Concomitant]
     Active Substance: MIRTAZAPINE
     Indication: Product used for unknown indication
     Route: 065
  14. NICOTINAMIDE [Suspect]
     Active Substance: NIACINAMIDE
     Route: 065
  15. OLANZAPINE [Suspect]
     Active Substance: OLANZAPINE
     Route: 048
  16. OLANZAPINE [Suspect]
     Active Substance: OLANZAPINE
     Route: 065
  17. PYRIDOXINE [Suspect]
     Active Substance: PYRIDOXINE
     Route: 065
  18. QUETIAPINE FUMARATE [Suspect]
     Active Substance: QUETIAPINE FUMARATE
     Indication: Product used for unknown indication
     Route: 065
  19. RIBOFLAVIN [Suspect]
     Active Substance: RIBOFLAVIN
     Route: 065
  20. RISPERIDONE [Concomitant]
     Active Substance: RISPERIDONE
     Route: 065
  21. RISPERIDONE [Concomitant]
     Active Substance: RISPERIDONE
     Route: 065
  22. SENNOSIDES [Concomitant]
     Active Substance: SENNOSIDES
     Route: 065
  23. SERINE [Suspect]
     Active Substance: SERINE
     Route: 065
  24. THIAMINE [Suspect]
     Active Substance: THIAMINE
     Route: 065
  25. .ALPHA.-TOCOPHEROL ACETATE [Suspect]
     Active Substance: .ALPHA.-TOCOPHEROL ACETATE
     Route: 065
  26. VENLAFAXINE HCL [Concomitant]
     Active Substance: VENLAFAXINE HYDROCHLORIDE
     Route: 065
  27. VITAMIN D3 [Suspect]
     Active Substance: CHOLECALCIFEROL
     Route: 065

REACTIONS (3)
  - Drug resistance [Not Recovered/Not Resolved]
  - Neutropenia [Not Recovered/Not Resolved]
  - Oropharyngeal pain [Not Recovered/Not Resolved]
